FAERS Safety Report 7589939-6 (Version None)
Quarter: 2011Q3

REPORT INFORMATION
  Report Type: 
  Country: None (occurrence: None)
  Receive Date: 20110705
  Receipt Date: 20110614
  Transmission Date: 20111222
  Serious: Yes (Hospitalization)
  Sender: FDA-Public Use
  Company Number: A0718144A

PATIENT
  Age: 66 Year
  Sex: Male
  Weight: 109.1 kg

DRUGS (11)
  1. AVANDIA [Suspect]
     Indication: TYPE 2 DIABETES MELLITUS
     Dosage: 8MG PER DAY
     Route: 048
     Dates: start: 20000101
  2. SINGULAIR [Concomitant]
  3. CELEBREX [Concomitant]
  4. LEVITRA [Concomitant]
  5. AVELOX [Concomitant]
  6. VIOXX [Concomitant]
  7. ACIPHEX [Concomitant]
  8. LIPITOR [Concomitant]
  9. GLUCOVANCE [Concomitant]
  10. GLUCOPHAGE [Concomitant]
  11. COZAAR [Concomitant]

REACTIONS (9)
  - CORONARY ARTERY BYPASS [None]
  - ANGINA UNSTABLE [None]
  - HEART INJURY [None]
  - ATRIAL FIBRILLATION [None]
  - SINUS TACHYCARDIA [None]
  - CARDIAC FAILURE CONGESTIVE [None]
  - CORONARY ARTERY STENOSIS [None]
  - POST PROCEDURAL COMPLICATION [None]
  - CORONARY ARTERY DISEASE [None]
